FAERS Safety Report 22871764 (Version 2)
Quarter: 2025Q3

REPORT INFORMATION
  Report Type: Spontaneous
  Country: US (occurrence: US)
  Receive Date: 20230828
  Receipt Date: 20250909
  Transmission Date: 20251020
  Serious: No
  Sender: CHATTEM
  Company Number: US-OPELLA-2023OHG003454

PATIENT

DRUGS (1)
  1. XYZAL [Suspect]
     Active Substance: LEVOCETIRIZINE DIHYDROCHLORIDE
     Indication: Seasonal allergy

REACTIONS (3)
  - Somnolence [Unknown]
  - Product packaging difficult to open [Unknown]
  - Product administered to patient of inappropriate age [Unknown]
